FAERS Safety Report 9636664 (Version 1)
Quarter: 2013Q4

REPORT INFORMATION
  Report Type: Spontaneous
  Country: PH (occurrence: PH)
  Receive Date: 20131021
  Receipt Date: 20131021
  Transmission Date: 20140711
  Serious: Yes (Hospitalization, Other)
  Sender: FDA-Public Use
  Company Number: PH-009507513-1310PHL007476

PATIENT
  Sex: Female

DRUGS (1)
  1. COZAAR [Suspect]
     Dosage: 1 TABLET, QD
     Route: 048

REACTIONS (3)
  - Hypertension [Unknown]
  - Stress [Unknown]
  - Cerebrovascular accident [Unknown]
